FAERS Safety Report 12328681 (Version 1)
Quarter: 2016Q2

REPORT INFORMATION
  Report Type: Spontaneous
  Country: US (occurrence: US)
  Receive Date: 20160503
  Receipt Date: 20160503
  Transmission Date: 20160815
  Serious: No
  Sender: FDA-Public Use
  Company Number: US-BEH-2015050120

PATIENT
  Age: 75 Year
  Sex: Male
  Weight: 95.3 kg

DRUGS (28)
  1. POTASSIUM [Concomitant]
     Active Substance: POTASSIUM
  2. BIOTIN [Concomitant]
     Active Substance: BIOTIN
  3. ASPIRIN. [Concomitant]
     Active Substance: ASPIRIN
  4. VITAMIN C [Concomitant]
     Active Substance: ASCORBIC ACID
  5. OXYGEN. [Concomitant]
     Active Substance: OXYGEN
  6. LASIX [Concomitant]
     Active Substance: FUROSEMIDE
  7. LIPITOR [Concomitant]
     Active Substance: ATORVASTATIN CALCIUM
  8. BUDESONIDE. [Concomitant]
     Active Substance: BUDESONIDE
  9. GLUCOPHAGE [Concomitant]
     Active Substance: METFORMIN HYDROCHLORIDE
  10. TRAZODONE [Concomitant]
     Active Substance: TRAZODONE HYDROCHLORIDE
  11. MUCINEX [Concomitant]
     Active Substance: GUAIFENESIN
  12. FISH OIL [Concomitant]
     Active Substance: FISH OIL
  13. NITROGLYCERIN. [Concomitant]
     Active Substance: NITROGLYCERIN
  14. ATIVAN [Concomitant]
     Active Substance: LORAZEPAM
  15. HIZENTRA [Suspect]
     Active Substance: HUMAN IMMUNOGLOBULIN G
     Indication: IMMUNODEFICIENCY COMMON VARIABLE
     Dosage: 4 GM 20ML VIAL; ??-MAY-2012
     Route: 058
  16. DIPHENHYDRAMINE. [Concomitant]
     Active Substance: DIPHENHYDRAMINE
  17. SAW PALMETTO [Concomitant]
     Active Substance: SAW PALMETTO
  18. PROTONIX [Concomitant]
     Active Substance: PANTOPRAZOLE SODIUM
  19. FLONASE [Concomitant]
     Active Substance: FLUTICASONE PROPIONATE
  20. NORVASC [Concomitant]
     Active Substance: AMLODIPINE BESYLATE
  21. LISINOPRIL. [Concomitant]
     Active Substance: LISINOPRIL
  22. HIZENTRA [Suspect]
     Active Substance: HUMAN IMMUNOGLOBULIN G
     Dosage: 1 GM 5MLVIAL; ??-MAY-2012
     Route: 058
  23. ACETAMINOPHEN. [Concomitant]
     Active Substance: ACETAMINOPHEN
  24. LIDOCAINE. [Concomitant]
     Active Substance: LIDOCAINE
  25. EPIPEN [Concomitant]
     Active Substance: EPINEPHRINE
  26. GLIPIZIDE. [Concomitant]
     Active Substance: GLIPIZIDE
  27. FLOMAX [Concomitant]
     Active Substance: TAMSULOSIN HYDROCHLORIDE
  28. THEO-24 [Concomitant]
     Active Substance: THEOPHYLLINE ANHYDROUS

REACTIONS (2)
  - Psoriasis [Recovered/Resolved]
  - Rash [Recovered/Resolved]

NARRATIVE: CASE EVENT DATE: 201503
